FAERS Safety Report 4837615-2 (Version None)
Quarter: 2005Q4

REPORT INFORMATION
  Report Type: 
  Country: None (occurrence: None)
  Receive Date: 20051128
  Receipt Date: 20051118
  Transmission Date: 20060501
  Serious: Yes (Other)
  Sender: FDA-Public Use
  Company Number: US-SANOFI-SYNTHELABO-A03200503843

PATIENT
  Sex: Male
  Weight: 79.36 kg

DRUGS (8)
  1. PLAVIX [Suspect]
     Indication: CEREBROVASCULAR ACCIDENT
     Route: 048
     Dates: start: 20040101, end: 20051101
  2. DYAZIDE [Concomitant]
     Dosage: UNK
     Route: 048
  3. NORVASC [Concomitant]
     Dosage: UNK
     Route: 048
  4. TOPROL-XL [Concomitant]
     Dosage: UNK
     Route: 048
  5. ASCORBIC ACID [Concomitant]
     Dosage: UNK
     Route: 065
  6. VITAMIN E [Concomitant]
     Dosage: UNK
     Route: 065
  7. MULTI-VITAMIN [Concomitant]
     Dosage: UNK
     Route: 048
  8. LOVENOX [Concomitant]
     Dosage: UNK
     Route: 058
     Dates: start: 20051101, end: 20051101

REACTIONS (1)
  - THROMBOSIS [None]
